FAERS Safety Report 8305691-0 (Version None)
Quarter: 2012Q2

REPORT INFORMATION
  Report Type: 
  Country: None (occurrence: None)
  Receive Date: 20120423
  Receipt Date: 20120413
  Transmission Date: 20120825
  Serious: Yes (Other)
  Sender: FDA-Public Use
  Company Number: CN-JNJFOC-20120406717

PATIENT
  Age: 3 Year
  Sex: Male
  Weight: 18 kg

DRUGS (2)
  1. IBUPROFEN [Suspect]
     Indication: PRODUCT USED FOR UNKNOWN INDICATION
     Route: 048
     Dates: start: 20120412, end: 20120412
  2. IBUPROFEN [Suspect]
     Route: 048

REACTIONS (2)
  - OVERDOSE [None]
  - ACCIDENTAL DRUG INTAKE BY CHILD [None]
